FAERS Safety Report 21096056 (Version 2)
Quarter: 2022Q3

REPORT INFORMATION
  Report Type: Spontaneous
  Country: US (occurrence: US)
  Receive Date: 20220718
  Receipt Date: 20220804
  Transmission Date: 20221026
  Serious: Yes (Hospitalization, Other)
  Sender: FDA-Public Use
  Company Number: US-TEVA-2022-US-2055551

PATIENT
  Sex: Female

DRUGS (12)
  1. PROCHLORPERAZINE [Suspect]
     Active Substance: PROCHLORPERAZINE
     Indication: Neuropsychiatric symptoms
     Route: 065
     Dates: start: 201207
  2. PROCHLORPERAZINE [Suspect]
     Active Substance: PROCHLORPERAZINE
     Indication: Developmental delay
  3. VERAPAMIL [Suspect]
     Active Substance: VERAPAMIL HYDROCHLORIDE
     Indication: Neuropsychiatric symptoms
     Route: 065
     Dates: start: 201301
  4. VERAPAMIL [Suspect]
     Active Substance: VERAPAMIL HYDROCHLORIDE
     Indication: Developmental delay
  5. PAROXETINE [Suspect]
     Active Substance: PAROXETINE
     Indication: Neuropsychiatric symptoms
     Route: 065
     Dates: start: 201308, end: 201310
  6. PAROXETINE [Suspect]
     Active Substance: PAROXETINE
     Indication: Developmental delay
  7. LAMOTRIGINE [Concomitant]
     Active Substance: LAMOTRIGINE
     Indication: Neuropsychiatric symptoms
     Route: 065
     Dates: start: 201301
  8. LAMOTRIGINE [Concomitant]
     Active Substance: LAMOTRIGINE
     Indication: Developmental delay
  9. LITHIUM [Concomitant]
     Active Substance: LITHIUM
     Indication: Neuropsychiatric symptoms
     Route: 065
     Dates: start: 201301
  10. LITHIUM [Concomitant]
     Active Substance: LITHIUM
     Indication: Developmental delay
  11. KETOROLAC [Concomitant]
     Active Substance: KETOROLAC TROMETHAMINE
     Indication: Neuropsychiatric symptoms
     Route: 065
     Dates: start: 201207
  12. KETOROLAC [Concomitant]
     Active Substance: KETOROLAC TROMETHAMINE
     Indication: Developmental delay

REACTIONS (5)
  - Developmental delay [Recovering/Resolving]
  - Neuropsychiatric symptoms [Recovering/Resolving]
  - Atrioventricular block second degree [Unknown]
  - Bradycardia [Unknown]
  - Electrocardiogram QT prolonged [Unknown]

NARRATIVE: CASE EVENT DATE: 20120701
